FAERS Safety Report 4943125-4 (Version None)
Quarter: 2006Q1

REPORT INFORMATION
  Report Type: 
  Country: None (occurrence: None)
  Receive Date: 20060314
  Receipt Date: 20060301
  Transmission Date: 20060701
  Serious: Yes (Other)
  Sender: FDA-Public Use
  Company Number: PHBS2006BR03404

PATIENT
  Age: 69 Year
  Sex: Female
  Weight: 59 kg

DRUGS (6)
  1. TEGRETOL [Suspect]
     Indication: CEREBRAL DISORDER
     Dosage: 200 MG, QD
     Route: 048
     Dates: start: 19720101, end: 19740101
  2. TEGRETOL [Suspect]
     Dosage: 200 MG, QD
     Route: 048
     Dates: start: 20050701
  3. LOSARTAN POTASSIUM AND HYDROCHLOROTHIAZIDE [Concomitant]
     Indication: HYPERTENSION
     Route: 065
  4. TOTELLE [Concomitant]
     Indication: HORMONE REPLACEMENT THERAPY
     Route: 065
  5. TRIMEBUTINE [Concomitant]
  6. RIVOTRIL [Concomitant]

REACTIONS (5)
  - CEREBRAL DISORDER [None]
  - COORDINATION ABNORMAL [None]
  - DIARRHOEA [None]
  - INSOMNIA [None]
  - MEMORY IMPAIRMENT [None]
